FAERS Safety Report 15930462 (Version 1)
Quarter: 2019Q1

REPORT INFORMATION
  Report Type: Report from Study
  Country: US (occurrence: US)
  Receive Date: 20190207
  Receipt Date: 20190207
  Transmission Date: 20190417
  Serious: Yes (Other)
  Sender: FDA-Public Use
  Company Number: US-ROCHE-2260324

PATIENT
  Sex: Male

DRUGS (7)
  1. LEVOTHYROXINE. [Concomitant]
     Active Substance: LEVOTHYROXINE
     Route: 048
  2. SINGULAIR [Concomitant]
     Active Substance: MONTELUKAST SODIUM
     Route: 048
  3. EMLA [Concomitant]
     Active Substance: LIDOCAINE\PRILOCAINE
     Route: 065
  4. DULERA [Concomitant]
     Active Substance: FORMOTEROL FUMARATE DIHYDRATE\MOMETASONE FUROATE
     Dosage: INHALER
     Route: 065
  5. NUTROPIN AQ [Suspect]
     Active Substance: SOMATROPIN
     Indication: HYPOPITUITARISM
     Route: 058
  6. ATIVAN [Concomitant]
     Active Substance: LORAZEPAM
     Dosage: 0.5- 1 MG EVERY SIX HRS
     Route: 048
  7. PROVENTIL [Concomitant]
     Active Substance: ALBUTEROL
     Route: 065

REACTIONS (3)
  - Seizure [Unknown]
  - Gait disturbance [Unknown]
  - Pupillary reflex impaired [Unknown]
